FAERS Safety Report 7305078-3 (Version None)
Quarter: 2011Q1

REPORT INFORMATION
  Report Type: 
  Country: None (occurrence: None)
  Receive Date: 20110222
  Receipt Date: 20110215
  Transmission Date: 20110831
  Serious: Yes (Other)
  Sender: FDA-Public Use
  Company Number: GB-SANOFI-AVENTIS-2011SA010115

PATIENT
  Age: 74 Year
  Sex: Male
  Weight: 75 kg

DRUGS (6)
  1. TAMSULOSIN [Concomitant]
     Route: 048
  2. RILUZOLE [Suspect]
     Indication: MOTOR NEURONE DISEASE
     Route: 048
     Dates: start: 20090601
  3. CHONDROITIN SULFATE [Concomitant]
     Route: 065
  4. TEGRETOL - SLOW RELEASE [Concomitant]
     Indication: EPILEPSY
     Route: 048
  5. LISINOPRIL [Concomitant]
     Indication: BLOOD PRESSURE
     Route: 048
  6. GLUCOSAMINE [Concomitant]
     Route: 048

REACTIONS (1)
  - EPILEPSY [None]
